FAERS Safety Report 23337078 (Version 1)
Quarter: 2023Q4

REPORT INFORMATION
  Report Type: Spontaneous
  Country: BR (occurrence: BR)
  Receive Date: 20231226
  Receipt Date: 20231226
  Transmission Date: 20240110
  Serious: Yes (Other)
  Sender: FDA-Public Use
  Company Number: BR-BAXTER-2023BAX038903

PATIENT
  Sex: Female

DRUGS (2)
  1. IRON [Suspect]
     Active Substance: IRON
     Dosage: 2 AMPOULES DILUTED IN 250 ML OF STERILE SALINE SOLUTION IN ONE HOUR, ADMINISTRATED AT 01:30 PM
     Route: 042
     Dates: start: 20231214, end: 20231214
  2. SODIUM CHLORIDE [Suspect]
     Active Substance: SODIUM CHLORIDE
     Indication: Medication dilution
     Dosage: 250 ML OF STERILE SALINE SOLUTION USED TO DILUTE 2 AMPOULES IN ONE HOUR, ADMINISTRATED AT 01:30 PM
     Route: 042
     Dates: start: 20231214, end: 20231214

REACTIONS (7)
  - Application site erythema [Recovered/Resolved]
  - Hypoaesthesia [Recovered/Resolved]
  - Nausea [Recovered/Resolved]
  - Vomiting [Recovered/Resolved]
  - Abdominal pain [Recovered/Resolved]
  - Peripheral swelling [Not Recovered/Not Resolved]
  - Urticaria [Recovered/Resolved]

NARRATIVE: CASE EVENT DATE: 20231214
